FAERS Safety Report 21885809 (Version 1)
Quarter: 2023Q1

REPORT INFORMATION
  Report Type: Spontaneous
  Country: US (occurrence: US)
  Receive Date: 20230119
  Receipt Date: 20230119
  Transmission Date: 20230417
  Serious: Yes (Hospitalization)
  Sender: FDA-Public Use
  Company Number: US-BRISTOL-MYERS SQUIBB COMPANY-2023-007899

PATIENT
  Age: 86 Year
  Sex: Female
  Weight: 49.9 kg

DRUGS (1)
  1. INREBIC [Suspect]
     Active Substance: FEDRATINIB HYDROCHLORIDE
     Indication: Myelofibrosis
     Dosage: USE AS DIRECTED?100-200 MG
     Route: 048
     Dates: start: 20220801

REACTIONS (1)
  - Epistaxis [Unknown]
